FAERS Safety Report 16202437 (Version 1)
Quarter: 2019Q2

REPORT INFORMATION
  Report Type: Spontaneous
  Country: US (occurrence: US)
  Receive Date: 20190416
  Receipt Date: 20190416
  Transmission Date: 20190711
  Serious: Yes (Other)
  Sender: FDA-Public Use
  Company Number: US-PFIZER INC-2019158730

PATIENT
  Age: 37 Year
  Sex: Female

DRUGS (2)
  1. LUCEMYRA [Suspect]
     Active Substance: LOFEXIDINE
     Dosage: 0.18 MG, UNK
     Route: 048
     Dates: start: 20190305
  2. XANAX [Suspect]
     Active Substance: ALPRAZOLAM
     Dosage: 4 MG, DAILY

REACTIONS (5)
  - Hypotension [Unknown]
  - Extrasystoles [Unknown]
  - Mutism [Unknown]
  - Loss of consciousness [Unknown]
  - Dreamy state [Unknown]
